FAERS Safety Report 24630775 (Version 1)
Quarter: 2024Q4

REPORT INFORMATION
  Report Type: Spontaneous
  Country: FR (occurrence: FR)
  Receive Date: 20241118
  Receipt Date: 20241118
  Transmission Date: 20250115
  Serious: Yes (Hospitalization)
  Sender: PFIZER
  Company Number: None

PATIENT
  Age: 75 Year
  Sex: Female
  Weight: 57 kg

DRUGS (4)
  1. LORLATINIB [Suspect]
     Active Substance: LORLATINIB
     Indication: Lung adenocarcinoma stage IV
     Dosage: 100 MG, 1X/DAY
     Route: 048
     Dates: start: 20240729, end: 20240910
  2. AVASTIN [Concomitant]
     Active Substance: BEVACIZUMAB
     Dosage: 15 MG/KG, 1X/DAY
     Route: 042
     Dates: start: 20240709
  3. CARBOPLATIN [Concomitant]
     Active Substance: CARBOPLATIN
     Dosage: UNK
     Dates: start: 20240223, end: 20240709
  4. PACLITAXEL [Concomitant]
     Active Substance: PACLITAXEL
     Dosage: UNK
     Dates: start: 20240223, end: 20240618

REACTIONS (2)
  - Hallucinations, mixed [Recovering/Resolving]
  - Depersonalisation/derealisation disorder [Recovered/Resolved]

NARRATIVE: CASE EVENT DATE: 20240829
